FAERS Safety Report 4503082-1 (Version None)
Quarter: 2004Q4

REPORT INFORMATION
  Report Type: 
  Country: None (occurrence: None)
  Receive Date: 20041116
  Receipt Date: 20041116
  Transmission Date: 20050328
  Serious: No
  Sender: FDA-Public Use
  Company Number: None

PATIENT
  Age: 53 Year
  Sex: Male
  Weight: 55.3388 kg

DRUGS (1)
  1. OXYCONTIN [Suspect]
     Indication: BACK PAIN
     Dosage: Q 12 HS

REACTIONS (3)
  - PHARMACEUTICAL PRODUCT COMPLAINT [None]
  - RASH GENERALISED [None]
  - URTICARIA [None]
